FAERS Safety Report 8338894 (Version 3)
Quarter: 2013Q4

REPORT INFORMATION
  Report Type: Spontaneous
  Country: US (occurrence: US)
  Receive Date: 20120106
  Receipt Date: 20131217
  Transmission Date: 20140711
  Serious: No
  Sender: FDA-Public Use
  Company Number: 2012SP000064

PATIENT
  Age: 60 Year
  Sex: Male
  Weight: 159 kg

DRUGS (8)
  1. VANCOMYCIN [Suspect]
  2. GLUCOTROL [Suspect]
     Indication: DIABETES MELLITUS
     Route: 048
     Dates: start: 1999
  3. MOTRIN [Suspect]
     Indication: ARTHRITIS
     Route: 048
  4. WARFARIN SODIUM [Suspect]
  5. AMIODARONE [Concomitant]
     Indication: ATRIAL FIBRILLATION
  6. PARACETAMOL [Concomitant]
     Indication: BACK PAIN
  7. CODEINE [Concomitant]
     Indication: BACK PAIN
  8. OXYCODONE HYDROCHLORIDE [Concomitant]

REACTIONS (5)
  - Blood glucose increased [Unknown]
  - Weight increased [Unknown]
  - Rash [Recovered/Resolved]
  - Skin discomfort [Unknown]
  - Drug ineffective [Unknown]
